FAERS Safety Report 16171851 (Version 1)
Quarter: 2019Q2

REPORT INFORMATION
  Report Type: Report from Study
  Country: IT (occurrence: IT)
  Receive Date: 20190408
  Receipt Date: 20190408
  Transmission Date: 20190711
  Serious: Yes (Other)
  Sender: FDA-Public Use
  Company Number: IT-ELI_LILLY_AND_COMPANY-IT201904001502

PATIENT
  Age: 50 Year
  Sex: Female

DRUGS (4)
  1. FLUOXETINE HYDROCHLORIDE. [Suspect]
     Active Substance: FLUOXETINE HYDROCHLORIDE
     Indication: SUICIDE ATTEMPT
     Dosage: 4 DF, TOTAL
     Route: 048
     Dates: start: 20190226, end: 20190226
  2. DEPAKIN [Suspect]
     Active Substance: VALPROATE SODIUM
     Indication: SUICIDE ATTEMPT
     Dosage: 4 DF, TOTAL
     Route: 048
     Dates: start: 20190226, end: 20190226
  3. LITHIUM CARBONATE. [Suspect]
     Active Substance: LITHIUM CARBONATE
     Indication: SUICIDE ATTEMPT
     Dosage: 4 DF, TOTAL
     Route: 048
     Dates: start: 20190226, end: 20190226
  4. GARDENALE [PHENOBARBITAL] [Suspect]
     Active Substance: PHENOBARBITAL
     Indication: SUICIDE ATTEMPT
     Dosage: 47 DF, TOTAL
     Route: 048
     Dates: start: 20190226, end: 20190226

REACTIONS (5)
  - Sopor [Recovering/Resolving]
  - Suicide attempt [None]
  - Aggression [Recovering/Resolving]
  - Drug abuse [None]
  - Vomiting [Recovering/Resolving]

NARRATIVE: CASE EVENT DATE: 20190226
